FAERS Safety Report 5839832-1 (Version None)
Quarter: 2008Q3

REPORT INFORMATION
  Report Type: 
  Country: None (occurrence: None)
  Receive Date: 20080807
  Receipt Date: 20080807
  Transmission Date: 20090109
  Serious: No
  Sender: FDA-Public Use
  Company Number: None

PATIENT
  Sex: Male

DRUGS (3)
  1. REVLIMID [Suspect]
     Indication: MULTIPLE MYELOMA
     Dosage: 25MG DAILY X21D/28D ORALLY
     Route: 048
     Dates: start: 20080320, end: 20080507
  2. REVLIMID [Suspect]
     Indication: MULTIPLE MYELOMA
     Dosage: 15MG DAILY X21D/28D ORALLY
     Route: 048
     Dates: start: 20080523, end: 20080716
  3. AREDIA [Concomitant]

REACTIONS (3)
  - FLUID INTAKE REDUCED [None]
  - NEUTROPENIA [None]
  - RENAL IMPAIRMENT [None]
